FAERS Safety Report 9460934 (Version 4)
Quarter: 2014Q1

REPORT INFORMATION
  Report Type: Spontaneous
  Country: US (occurrence: US)
  Receive Date: 20130816
  Receipt Date: 20140317
  Transmission Date: 20141002
  Serious: Yes (Other)
  Sender: FDA-Public Use
  Company Number: US-BIOGENIDEC-2013BI072477

PATIENT
  Age: 60 Year
  Sex: Female
  Weight: 73 kg

DRUGS (19)
  1. TYSABRI [Suspect]
     Indication: MULTIPLE SCLEROSIS
     Route: 042
     Dates: start: 20081104, end: 20130214
  2. GILENYA [Concomitant]
     Route: 048
     Dates: start: 201304
  3. CELEBREX [Concomitant]
     Route: 048
  4. B COMPLEX WITH VITAMIN C [Concomitant]
     Route: 048
  5. SYNTHROID [Concomitant]
     Route: 048
  6. CYMBALTA [Concomitant]
     Route: 048
  7. FLONASE [Concomitant]
     Route: 045
  8. OMPERAZOLE [Concomitant]
     Route: 048
  9. ZETIA [Concomitant]
     Route: 048
  10. VITAMIN D3 [Concomitant]
     Route: 048
  11. CALCIUM MAGNESIUM [Concomitant]
  12. MULTIVITAMIN [Concomitant]
     Route: 048
  13. KLONOPIN [Concomitant]
     Route: 048
  14. TOPIRAMATE [Concomitant]
     Route: 048
  15. ADDERALL XR [Concomitant]
     Route: 048
  16. TRAZODONE [Concomitant]
     Route: 048
  17. GABAPENTIN [Concomitant]
     Route: 048
  18. D-AMPHETAMINE [Concomitant]
  19. NORCO [Concomitant]
     Route: 048

REACTIONS (2)
  - Progressive multifocal leukoencephalopathy [Not Recovered/Not Resolved]
  - Immune reconstitution inflammatory syndrome [Recovered/Resolved]
